FAERS Safety Report 4357686-X (Version None)
Quarter: 2004Q2

REPORT INFORMATION
  Report Type: 
  Country: None (occurrence: None)
  Receive Date: 20040513
  Receipt Date: 20000720
  Transmission Date: 20050107
  Serious: Yes (Other)
  Sender: FDA-Public Use
  Company Number: US-ROCHE-241383

PATIENT
  Age: 50 Year
  Sex: Female
  Weight: 79.4 kg

DRUGS (1)
  1. XENICAL [Suspect]
     Indication: OBESITY
     Route: 048
     Dates: start: 20000304

REACTIONS (6)
  - FREQUENT BOWEL MOVEMENTS [None]
  - LOOSE STOOLS [None]
  - MOUTH ULCERATION [None]
  - NASAL ULCER [None]
  - STEATORRHOEA [None]
  - TONGUE DISORDER [None]
